FAERS Safety Report 14547366 (Version 1)
Quarter: 2018Q1

REPORT INFORMATION
  Report Type: Spontaneous
  Country: JP (occurrence: JP)
  Receive Date: 20180219
  Receipt Date: 20180219
  Transmission Date: 20180509
  Serious: Yes (Other)
  Sender: FDA-Public Use
  Company Number: JP-PFIZER INC-2011253774

PATIENT
  Age: 1 Year
  Sex: Male

DRUGS (5)
  1. CILASTATIN SODIUM W/IMIPENEM [Concomitant]
     Active Substance: CILASTATIN SODIUM\IMIPENEM
     Dosage: 30 MG/KG, UNK
  2. CEFTRIAXONE SODIUM. [Suspect]
     Active Substance: CEFTRIAXONE SODIUM
     Dosage: 50 MG/KG, DAILY
     Route: 041
  3. BENZYLPENICILLIN [Concomitant]
     Active Substance: PENICILLIN G
     Indication: MENINGITIS BACTERIAL
     Dosage: 100 MG/KG, DAILY
     Route: 041
  4. CEFTRIAXONE SODIUM. [Suspect]
     Active Substance: CEFTRIAXONE SODIUM
     Indication: MENINGITIS BACTERIAL
     Dosage: 100 MG/KG, DAILY
     Route: 041
  5. GAMMA GLOBULIN [Concomitant]
     Active Substance: IMMUNE GLOBULIN NOS
     Indication: MENINGITIS BACTERIAL
     Dosage: UNK
     Route: 041

REACTIONS (2)
  - Cholelithiasis [Recovered/Resolved]
  - Pseudocholelithiasis [Recovered/Resolved]
